FAERS Safety Report 15644468 (Version 1)
Quarter: 2018Q4

REPORT INFORMATION
  Report Type: Spontaneous
  Country: US (occurrence: US)
  Receive Date: 20181121
  Receipt Date: 20181121
  Transmission Date: 20190205
  Serious: Yes (Other)
  Sender: FDA-Public Use
  Company Number: None

PATIENT
  Age: 11 Year
  Sex: Female

DRUGS (1)
  1. BANANA BOAT SPORT PERFORMANCE WITH POWERSTAY TECHNOLOGY BROAD SPECTRUM SPF50 [Suspect]
     Active Substance: AVOBENZONE\HOMOSALATE\OCTISALATE\OCTOCRYLENE
     Indication: PROPHYLAXIS AGAINST SOLAR RADIATION
     Dosage: ?          OTHER STRENGTH:SPF 50;QUANTITY:2 APPLICATION;?
     Route: 061
     Dates: start: 20181119, end: 20181120

REACTIONS (2)
  - Eye swelling [None]
  - Dermatitis allergic [None]

NARRATIVE: CASE EVENT DATE: 20181120
